FAERS Safety Report 13115910 (Version 1)
Quarter: 2017Q1

REPORT INFORMATION
  Report Type: Report from Study
  Country: US (occurrence: US)
  Receive Date: 20170115
  Receipt Date: 20170115
  Transmission Date: 20170428
  Serious: Yes (Hospitalization)
  Sender: FDA-Public Use
  Company Number: US-BIOGEN-2017BI00342282

PATIENT
  Sex: Female

DRUGS (2)
  1. TYSABRI [Suspect]
     Active Substance: NATALIZUMAB
     Indication: MULTIPLE SCLEROSIS
     Route: 065
     Dates: start: 20131028, end: 20151214
  2. TYSABRI [Suspect]
     Active Substance: NATALIZUMAB
     Route: 065
     Dates: start: 20160511

REACTIONS (1)
  - Device related sepsis [Unknown]
